FAERS Safety Report 12535039 (Version 3)
Quarter: 2016Q3

REPORT INFORMATION
  Report Type: Spontaneous
  Country: US (occurrence: US)
  Receive Date: 20160707
  Receipt Date: 20160808
  Transmission Date: 20161109
  Serious: No
  Sender: FDA-Public Use
  Company Number: US-BEH-2015056443

PATIENT
  Sex: Female
  Weight: 75 kg

DRUGS (27)
  1. GABAPENTIN. [Concomitant]
     Active Substance: GABAPENTIN
     Dosage: POWDER
  2. BL VITAMIN E [Concomitant]
  3. LEVOCETIRIZINE DIHYDROCHLORIDE. [Concomitant]
     Active Substance: LEVOCETIRIZINE DIHYDROCHLORIDE
  4. CVS VITAMIN D [Concomitant]
  5. ASPIRIN. [Concomitant]
     Active Substance: ASPIRIN
  6. HIZENTRA [Suspect]
     Active Substance: HUMAN IMMUNOGLOBULIN G
     Indication: IMMUNODEFICIENCY COMMON VARIABLE
     Route: 058
  7. VENTOLIN HFA [Concomitant]
     Active Substance: ALBUTEROL SULFATE
     Dosage: INHALER
  8. OYSTER SHELL CALCIUM+D [Concomitant]
  9. DIPHENHYDRAMINE. [Concomitant]
     Active Substance: DIPHENHYDRAMINE
  10. VITAMIN B12 [Concomitant]
     Active Substance: CYANOCOBALAMIN
  11. BIOTIN [Concomitant]
     Active Substance: BIOTIN
  12. WARFARIN SODIUM. [Concomitant]
     Active Substance: WARFARIN SODIUM
  13. HIZENTRA [Suspect]
     Active Substance: HUMAN IMMUNOGLOBULIN G
     Route: 058
  14. HIZENTRA [Suspect]
     Active Substance: HUMAN IMMUNOGLOBULIN G
     Route: 058
     Dates: start: 20110228
  15. ATENOLOL. [Concomitant]
     Active Substance: ATENOLOL
  16. EPI-PEN AUTOINJECTOR [Concomitant]
  17. METFORMIN HCL [Concomitant]
     Active Substance: METFORMIN HYDROCHLORIDE
  18. TERBINAFINE HCL [Concomitant]
     Active Substance: TERBINAFINE HYDROCHLORIDE
  19. LIDOCAINE. [Concomitant]
     Active Substance: LIDOCAINE
  20. GABAPENTIN. [Concomitant]
     Active Substance: GABAPENTIN
  21. AMOXICILLIN. [Concomitant]
     Active Substance: AMOXICILLIN
  22. LEVOTHYROXINE. [Concomitant]
     Active Substance: LEVOTHYROXINE
  23. DIGOXIN. [Concomitant]
     Active Substance: DIGOXIN
  24. EQL POTASSIUM GLUC [Concomitant]
  25. FERROUS SULFATE. [Concomitant]
     Active Substance: FERROUS SULFATE
     Dosage: 325(65) MG
  26. HYDROCHLOROTHIAZIDE. [Concomitant]
     Active Substance: HYDROCHLOROTHIAZIDE
  27. CVS FOLIC ACID [Concomitant]

REACTIONS (1)
  - Toothache [Unknown]
